FAERS Safety Report 14609702 (Version 2)
Quarter: 2018Q2

REPORT INFORMATION
  Report Type: Report from Study
  Country: None (occurrence: US)
  Receive Date: 20180307
  Receipt Date: 20180612
  Transmission Date: 20180711
  Serious: Yes (Hospitalization, Other)
  Sender: FDA-Public Use
  Company Number: US-ABBVIE-18K-163-2264706-00

PATIENT
  Age: 38 Year
  Sex: Female
  Weight: 116.86 kg

DRUGS (1)
  1. HUMIRA [Suspect]
     Active Substance: ADALIMUMAB
     Indication: HIDRADENITIS
     Route: 058
     Dates: start: 201712

REACTIONS (10)
  - Panniculitis [Recovered/Resolved]
  - Pilonidal cyst [Recovering/Resolving]
  - Intervertebral disc protrusion [Unknown]
  - Nerve compression [Unknown]
  - Fatigue [Unknown]
  - White blood cell count increased [Recovering/Resolving]
  - Abscess [Unknown]
  - Cellulitis [Unknown]
  - Abdominal pain [Recovering/Resolving]
  - Abdominal pain [Recovered/Resolved]

NARRATIVE: CASE EVENT DATE: 20180214
